FAERS Safety Report 15402800 (Version 1)
Quarter: 2018Q3

REPORT INFORMATION
  Report Type: Spontaneous
  Country: US (occurrence: US)
  Receive Date: 20180917
  Receipt Date: 20180917
  Transmission Date: 20181010
  Serious: Yes (Other)
  Sender: FDA-Public Use
  Company Number: None

PATIENT
  Age: 23 Year
  Sex: Female
  Weight: 59.4 kg

DRUGS (1)
  1. TESTOSTERONE 10 ML [Suspect]
     Active Substance: TESTOSTERONE
     Indication: HORMONE THERAPY
     Route: 058

REACTIONS (7)
  - Anger [None]
  - Acne [None]
  - Dysphonia [None]
  - Hypertrichosis [None]
  - Aggression [None]
  - Amenorrhoea [None]
  - Infertility female [None]
